FAERS Safety Report 13811611 (Version 1)
Quarter: 2017Q3

REPORT INFORMATION
  Report Type: Spontaneous
  Country: US (occurrence: US)
  Receive Date: 20170728
  Receipt Date: 20170728
  Transmission Date: 20171127
  Serious: No
  Sender: FDA-Public Use
  Company Number: US-ROCHE-761843

PATIENT
  Age: 83 Year
  Sex: Female
  Weight: 42.6 kg

DRUGS (68)
  1. SYNTHROID [Concomitant]
     Active Substance: LEVOTHYROXINE SODIUM
     Route: 065
  2. ATROVENT [Concomitant]
     Active Substance: IPRATROPIUM BROMIDE
     Dosage: FORM: PUFF, DOSE: TWO PUFFS EVERY FOUR HOURS
     Route: 065
  3. BENADRYL [Concomitant]
     Active Substance: DIPHENHYDRAMINE HYDROCHLORIDE
     Route: 065
  4. LIDOCAINE. [Concomitant]
     Active Substance: LIDOCAINE
     Indication: PRURITUS
     Route: 061
  5. AMMONIUM LACTATE. [Concomitant]
     Active Substance: AMMONIUM LACTATE
     Dosage: DRUG REPORTED AS AMMONIUM LACTATE AAA
     Route: 065
  6. TERRAMYCIN [Concomitant]
     Active Substance: OXYTETRACYCLINE\OXYTETRACYCLINE HYDROCHLORIDE
     Route: 065
  7. DECLOMYCIN [Concomitant]
     Active Substance: DEMECLOCYCLINE HYDROCHLORIDE
     Route: 065
  8. TERRAMYCIN [Concomitant]
     Active Substance: OXYTETRACYCLINE\OXYTETRACYCLINE HYDROCHLORIDE
     Route: 065
  9. RANEXA [Concomitant]
     Active Substance: RANOLAZINE
     Route: 065
  10. HYTRIN [Concomitant]
     Active Substance: TERAZOSIN HYDROCHLORIDE
     Route: 065
  11. FLOVENT [Concomitant]
     Active Substance: FLUTICASONE PROPIONATE
     Route: 065
  12. DIPHENHYDRAMINE HYDROCHLORIDE. [Concomitant]
     Active Substance: DIPHENHYDRAMINE HYDROCHLORIDE
     Indication: PRURITUS
     Dosage: WHEN EVER NECESSARY ON ITCHING
     Route: 065
  13. AUREOMYCIN [Concomitant]
     Active Substance: CHLORTETRACYCLINE HYDROCHLORIDE
     Route: 065
  14. FERROUS SULFATE. [Concomitant]
     Active Substance: FERROUS SULFATE
     Route: 065
  15. TESTOSTERONE. [Concomitant]
     Active Substance: TESTOSTERONE
     Route: 065
  16. IV CONTRAST DYE [Concomitant]
     Active Substance: UNSPECIFIED INGREDIENT
     Route: 065
  17. INH [Concomitant]
     Active Substance: ISONIAZID
     Route: 065
  18. CLARITIN [Concomitant]
     Active Substance: LORATADINE
     Dosage: FREQUENCY: EVERY NIGHT
     Route: 065
  19. PYRIDIUM [Concomitant]
     Active Substance: PHENAZOPYRIDINE
     Route: 065
  20. MANDELAMINE [Concomitant]
     Active Substance: METHENAMINE MANDELATE
     Route: 065
  21. DOCUSATE CALCIUM. [Concomitant]
     Active Substance: DOCUSATE CALCIUM
     Route: 065
  22. SCOPOLAMINE [Concomitant]
     Active Substance: SCOPOLAMINE
     Route: 065
  23. LACTOSE [Concomitant]
     Active Substance: LACTOSE
     Route: 065
  24. DILTIAZEM ER [Concomitant]
     Active Substance: DILTIAZEM
     Route: 065
  25. LIDOCAINE. [Concomitant]
     Active Substance: LIDOCAINE
     Dosage: WHENEVER NEEDED ON ITCHING
     Route: 061
  26. FURADANTIN [Concomitant]
     Active Substance: NITROFURANTOIN
     Route: 065
  27. FENTANYL. [Concomitant]
     Active Substance: FENTANYL
     Route: 065
  28. HYDRALAZINE [Concomitant]
     Active Substance: HYDRALAZINE HYDROCHLORIDE
     Route: 065
  29. NITROUS OXIDE. [Concomitant]
     Active Substance: NITROUS OXIDE
     Route: 065
  30. ZOCOR [Concomitant]
     Active Substance: SIMVASTATIN
     Route: 065
  31. SPIRIVA [Concomitant]
     Active Substance: TIOTROPIUM BROMIDE MONOHYDRATE
     Route: 065
  32. IODINE. [Concomitant]
     Active Substance: IODINE
     Route: 065
  33. LACTOSE [Concomitant]
     Active Substance: LACTOSE
  34. LISINOPRIL. [Concomitant]
     Active Substance: LISINOPRIL
     Route: 065
  35. PHENERGAN [Concomitant]
     Active Substance: PROMETHAZINE HYDROCHLORIDE
     Route: 065
  36. ZINC. [Concomitant]
     Active Substance: ZINC
     Dosage: FREQUENCY: EVERY NIGHT
     Route: 065
  37. CALCITONIN [Concomitant]
     Active Substance: CALCITONIN
     Route: 065
  38. AZMACORT [Concomitant]
     Active Substance: TRIAMCINOLONE ACETONIDE
     Route: 065
  39. PERIACTIN [Concomitant]
     Active Substance: CYPROHEPTADINE HYDROCHLORIDE
     Route: 065
  40. FIORINAL [Concomitant]
     Active Substance: ASPIRIN\BUTALBITAL\CAFFEINE
     Route: 065
  41. PREMARIN [Concomitant]
     Active Substance: ESTROGENS, CONJUGATED
     Route: 065
  42. MERTHIOLATE [Concomitant]
     Active Substance: BENZALKONIUM CHLORIDE
     Route: 065
  43. MUCINEX [Concomitant]
     Active Substance: GUAIFENESIN
     Route: 065
  44. ASPIRIN. [Concomitant]
     Active Substance: ASPIRIN
     Route: 065
  45. VICODIN [Concomitant]
     Active Substance: ACETAMINOPHEN\HYDROCODONE BITARTRATE
     Route: 065
  46. ULTRAM [Concomitant]
     Active Substance: TRAMADOL HYDROCHLORIDE
     Route: 065
  47. PAPAVERINE [Concomitant]
     Active Substance: PAPAVERINE
     Route: 065
  48. BONIVA [Suspect]
     Active Substance: IBANDRONATE SODIUM
     Indication: OSTEOPOROSIS
     Dosage: FORM: INFUSION
     Route: 042
  49. NEURONTIN [Concomitant]
     Active Substance: GABAPENTIN
     Route: 065
  50. STREPTOMYCIN [Concomitant]
     Active Substance: STREPTOMYCIN\STREPTOMYCIN SULFATE
     Route: 065
  51. GANTRISIN [Concomitant]
     Active Substance: SULFISOXAZOLE ACETYL
     Route: 065
  52. DARVON [Concomitant]
     Active Substance: PROPOXYPHENE HYDROCHLORIDE
     Route: 065
  53. BETADINE [Concomitant]
     Active Substance: POVIDONE-IODINE
     Route: 065
  54. PHISOHEX [Concomitant]
     Active Substance: HEXACHLOROPHENE
     Route: 065
  55. ALDACTONE [Concomitant]
     Active Substance: SPIRONOLACTONE
     Route: 065
  56. CALTRATE WITH VITAMIN D [Concomitant]
     Active Substance: CALCIUM CARBONATE\CHOLECALCIFEROL
     Dosage: DRUG REPORTED AS CALTRATE VIT D 600/400, THREE TABLETS EVERY NIGHT
     Route: 065
  57. ALBUTEROL. [Concomitant]
     Active Substance: ALBUTEROL
     Dosage: DOSE 02 PUFFS EVERY 04 HOURS
     Route: 065
  58. TYLENOL [Concomitant]
     Active Substance: ACETAMINOPHEN
     Route: 065
  59. SINGULAIR [Concomitant]
     Active Substance: MONTELUKAST SODIUM
     Dosage: FREQUENCY: EVERY NIGHT
     Route: 065
  60. ERYTHROMYCIN. [Concomitant]
     Active Substance: ERYTHROMYCIN
     Route: 065
  61. NIFEDIPINE. [Concomitant]
     Active Substance: NIFEDIPINE
     Route: 065
  62. ALCOHOL. [Concomitant]
     Active Substance: ALCOHOL
     Route: 065
  63. LYRICA [Concomitant]
     Active Substance: PREGABALIN
     Route: 065
  64. CHLORPROMAZINE. [Concomitant]
     Active Substance: CHLORPROMAZINE
     Route: 065
  65. OPANA [Concomitant]
     Active Substance: OXYMORPHONE HYDROCHLORIDE
     Route: 065
  66. INDOCIN [Concomitant]
     Active Substance: INDOMETHACIN
     Route: 065
  67. HYDROCORTISONE. [Concomitant]
     Active Substance: HYDROCORTISONE
     Route: 065
  68. VERSED [Concomitant]
     Active Substance: MIDAZOLAM HYDROCHLORIDE
     Route: 065

REACTIONS (1)
  - Arthralgia [Unknown]

NARRATIVE: CASE EVENT DATE: 20110225
